FAERS Safety Report 5597855-4 (Version None)
Quarter: 2007Q4

REPORT INFORMATION
  Report Type: 
  Country: None (occurrence: None)
  Receive Date: 20071221
  Receipt Date: 20070524
  Transmission Date: 20080405
  Serious: Yes (Hospitalization)
  Sender: FDA-Public Use
  Company Number: US200705006262

PATIENT
  Sex: Female

DRUGS (1)
  1. HUMULIN R [Suspect]
     Dosage: UNK

REACTIONS (2)
  - DIABETIC KETOACIDOSIS [None]
  - HYPERSENSITIVITY [None]
